FAERS Safety Report 7546436-1 (Version None)
Quarter: 2011Q2

REPORT INFORMATION
  Report Type: 
  Country: None (occurrence: None)
  Receive Date: 20110614
  Receipt Date: 20110609
  Transmission Date: 20111010
  Serious: Yes (Hospitalization, Other)
  Sender: FDA-Public Use
  Company Number: US-ROXANE LABORATORIES, INC.-2011-RO-00573RO

PATIENT
  Sex: Male

DRUGS (16)
  1. DEXAMETHASONE [Suspect]
     Indication: MULTIPLE MYELOMA
     Dosage: 40 MG
     Route: 048
     Dates: start: 20110401
  2. LENALIDOMIDE [Suspect]
     Route: 048
     Dates: start: 20110401
  3. CLONOPIN [Concomitant]
  4. SENOKOT [Concomitant]
     Dates: start: 20100717
  5. LENALIDOMIDE [Suspect]
     Indication: MULTIPLE MYELOMA
     Dosage: 10 MG
     Route: 048
     Dates: start: 20110401
  6. ATIVAN [Concomitant]
     Dates: start: 20100701
  7. GABAPENTIN [Concomitant]
     Dates: start: 20100415
  8. DEXAMETHASONE [Suspect]
     Route: 048
     Dates: start: 20110401
  9. BMS833923 [Suspect]
     Indication: MULTIPLE MYELOMA
     Dosage: 90 MG
     Route: 048
     Dates: start: 20110520
  10. MAGNESIUM SULFATE [Concomitant]
     Dates: start: 20100512
  11. CLONAZEPAM [Concomitant]
     Dates: start: 20100916
  12. ASPIRIN [Concomitant]
     Indication: THROMBOSIS PROPHYLAXIS
     Dates: start: 20100827
  13. CALCIUM AND VITAMIN D [Concomitant]
  14. CALCIUM CARBONATE [Concomitant]
     Dates: start: 20070831
  15. CENTRUM SILVER [Concomitant]
     Dates: start: 20070831
  16. NEURONTIN [Concomitant]

REACTIONS (5)
  - PYREXIA [None]
  - OTITIS MEDIA [None]
  - STREPTOCOCCAL BACTERAEMIA [None]
  - SINUSITIS [None]
  - NEUTROPENIA [None]
